FAERS Safety Report 8240411-X (Version None)
Quarter: 2012Q1

REPORT INFORMATION
  Report Type: 
  Country: None (occurrence: None)
  Receive Date: 20120328
  Receipt Date: 20120316
  Transmission Date: 20120608
  Serious: Yes (Death, Life-Threatening, Hospitalization, Disabling)
  Sender: FDA-Public Use
  Company Number: US-PFIZER INC-2011281151

PATIENT
  Age: 81 Year
  Sex: Male

DRUGS (2)
  1. SORAFENIB [Suspect]
     Indication: THYROID CANCER
     Dosage: UNK
     Route: 048
     Dates: start: 20110922, end: 20111105
  2. TORISEL [Suspect]
     Indication: THYROID CANCER
     Dosage: UNK
     Route: 042
     Dates: start: 20110922, end: 20111102

REACTIONS (4)
  - DEHYDRATION [None]
  - DECREASED APPETITE [None]
  - FATIGUE [None]
  - RESPIRATORY FAILURE [None]
